FAERS Safety Report 15694424 (Version 1)
Quarter: 2018Q4

REPORT INFORMATION
  Report Type: Spontaneous
  Country: US (occurrence: US)
  Receive Date: 20181206
  Receipt Date: 20181206
  Transmission Date: 20190205
  Serious: No
  Sender: FDA-Public Use
  Company Number: US-SUNOVION-2018SUN004656

PATIENT

DRUGS (1)
  1. LATUDA [Suspect]
     Active Substance: LURASIDONE HYDROCHLORIDE
     Dosage: 20 MG, UNK
     Route: 048

REACTIONS (6)
  - Hallucination, auditory [Unknown]
  - Hallucination, visual [Unknown]
  - Paranoia [Recovering/Resolving]
  - Anger [Unknown]
  - Feeling abnormal [Unknown]
  - Stress [Unknown]
